FAERS Safety Report 9392663 (Version 2)
Quarter: 2013Q3

REPORT INFORMATION
  Report Type: Spontaneous
  Country: JP (occurrence: JP)
  Receive Date: 20130710
  Receipt Date: 20130814
  Transmission Date: 20140515
  Serious: Yes (Other)
  Sender: FDA-Public Use
  Company Number: PHHY2013JP072805

PATIENT
  Sex: 0

DRUGS (1)
  1. LAMISIL [Suspect]
     Indication: ONYCHOMYCOSIS
     Dosage: 125 MG, DAILY
     Route: 048
     Dates: end: 20130705

REACTIONS (1)
  - Enterocolitis haemorrhagic [Recovered/Resolved]
